FAERS Safety Report 8814378 (Version 2)
Quarter: 2013Q3

REPORT INFORMATION
  Report Type: Report from Study
  Country: US (occurrence: US)
  Receive Date: 20120928
  Receipt Date: 20130917
  Transmission Date: 20140515
  Serious: Yes (Other)
  Sender: FDA-Public Use
  Company Number: PHEH2012US018610

PATIENT
  Sex: Female

DRUGS (1)
  1. SANDOSTATIN LAR DEPOT [Suspect]
     Dosage: 20 MG, UNK
     Route: 030

REACTIONS (5)
  - Cardiac disorder [Unknown]
  - Neoplasm [Unknown]
  - Lymphadenopathy [Unknown]
  - Full blood count increased [Unknown]
  - Secretion discharge [Unknown]
